FAERS Safety Report 22074579 (Version 1)
Quarter: 2023Q1

REPORT INFORMATION
  Report Type: Spontaneous
  Country: US (occurrence: US)
  Receive Date: 20230308
  Receipt Date: 20230308
  Transmission Date: 20230417
  Serious: No
  Sender: FDA-Public Use
  Company Number: US-PFIZER INC-PV202300041345

PATIENT
  Age: 49 Year
  Sex: Female

DRUGS (1)
  1. XELJANZ XR [Suspect]
     Active Substance: TOFACITINIB CITRATE
     Dosage: UNK

REACTIONS (10)
  - Blood pressure increased [Unknown]
  - Abdominal pain upper [Unknown]
  - Back pain [Unknown]
  - Joint stiffness [Unknown]
  - Arthralgia [Unknown]
  - Nail discolouration [Unknown]
  - Dry skin [Unknown]
  - Skin fissures [Unknown]
  - Pain in jaw [Unknown]
  - Gingival pain [Unknown]
